FAERS Safety Report 6171522-0 (Version None)
Quarter: 2009Q2

REPORT INFORMATION
  Report Type: 
  Country: None (occurrence: None)
  Receive Date: 20090427
  Receipt Date: 20090415
  Transmission Date: 20091009
  Serious: Yes (Other)
  Sender: FDA-Public Use
  Company Number: 2009AL002336

PATIENT
  Age: 64 Year
  Sex: Male

DRUGS (8)
  1. FEVERALL [Suspect]
     Route: 054
  2. REMICADE [Concomitant]
  3. FERROUS FUMARATE [Concomitant]
  4. AZATHIOPRINE [Concomitant]
  5. ATENOLOL [Concomitant]
  6. OMEPRAZOLE [Concomitant]
  7. ACETAMINOPHEN W/ CODEINE [Concomitant]
  8. FERROUS SULFATE TAB [Concomitant]

REACTIONS (1)
  - MULTIPLE DRUG OVERDOSE INTENTIONAL [None]
